FAERS Safety Report 5381659-1 (Version None)
Quarter: 2007Q2

REPORT INFORMATION
  Report Type: 
  Country: None (occurrence: None)
  Receive Date: 20070629
  Receipt Date: 20061110
  Transmission Date: 20071010
  Serious: Yes (Other)
  Sender: FDA-Public Use
  Company Number: 2006094434

PATIENT

DRUGS (1)
  1. ZOLOFT [Suspect]
     Indication: AFFECTIVE DISORDER
     Dosage: 50-75 MILLIGRAMS (1 D)

REACTIONS (3)
  - DYSTONIA [None]
  - MUSCLE TWITCHING [None]
  - TIC [None]
